FAERS Safety Report 25006861 (Version 1)
Quarter: 2025Q1

REPORT INFORMATION
  Report Type: Spontaneous
  Country: IN (occurrence: IN)
  Receive Date: 20250225
  Receipt Date: 20250225
  Transmission Date: 20250409
  Serious: Yes (Other)
  Sender: SANDOZ
  Company Number: IN-SANDOZ-SDZ2025IN011380

PATIENT
  Sex: Female

DRUGS (1)
  1. TACROLIMUS [Suspect]
     Active Substance: TACROLIMUS
     Indication: Liver transplant
     Dosage: 0.5MG (BD) - MONDAY | WEDNESDAY | FRIDAY, 0.5MG (N) - OTHER DAY
     Route: 048

REACTIONS (4)
  - Infectious pleural effusion [Unknown]
  - Incisional hernia [Unknown]
  - Atypical mycobacterial pneumonia [Unknown]
  - Hyperkalaemia [Unknown]
